FAERS Safety Report 8169939-8 (Version None)
Quarter: 2012Q1

REPORT INFORMATION
  Report Type: 
  Country: None (occurrence: None)
  Receive Date: 20120228
  Receipt Date: 20120228
  Transmission Date: 20120608
  Serious: Yes (Death)
  Sender: FDA-Public Use
  Company Number: None

PATIENT
  Sex: Male
  Weight: 94.7 kg

DRUGS (1)
  1. PRADAXA [Suspect]
     Indication: ATRIAL FIBRILLATION
     Dosage: 150MG
     Route: 048
     Dates: start: 20120117, end: 20120218

REACTIONS (6)
  - CEREBRAL HAEMORRHAGE [None]
  - ISCHAEMIA [None]
  - GASTROINTESTINAL HAEMORRHAGE [None]
  - HYPOXIC-ISCHAEMIC ENCEPHALOPATHY [None]
  - UNRESPONSIVE TO STIMULI [None]
  - HAEMORRHAGE [None]
